FAERS Safety Report 5852371-7 (Version None)
Quarter: 2008Q3

REPORT INFORMATION
  Report Type: 
  Country: None (occurrence: None)
  Receive Date: 20080819
  Receipt Date: 20080804
  Transmission Date: 20090109
  Serious: Yes (Death)
  Sender: FDA-Public Use
  Company Number: KADN20080312

PATIENT
  Age: 32 Year
  Sex: Female

DRUGS (10)
  1. MORPHINE [Suspect]
     Dosage: ORAL
     Route: 048
     Dates: end: 20060101
  2. OXYCODONE HCL [Suspect]
     Dosage: ORAL
     Route: 048
     Dates: end: 20060101
  3. ZOLPIDEM [Concomitant]
  4. ACETAMINOPHEN [Concomitant]
  5. DIPHENHYDRAMINE HCL [Concomitant]
  6. VERAPAMIL [Concomitant]
  7. PROMETHAZINE [Concomitant]
  8. CYCLOBENZAPRINE HCL [Concomitant]
  9. TEMAZEPAM [Concomitant]
  10. CARISOPRODOL [Concomitant]

REACTIONS (1)
  - DRUG TOXICITY [None]
